FAERS Safety Report 8875488 (Version 1)
Quarter: 2012Q4

REPORT INFORMATION
  Report Type: 
  Country: FR (occurrence: FR)
  Receive Date: 20121023
  Receipt Date: 20121023
  Transmission Date: 20130627
  Serious: Yes (Hospitalization)
  Sender: FDA-Public Use
  Company Number: FR-BRISTOL-MYERS SQUIBB COMPANY-17044942

PATIENT
  Age: 67 Year
  Sex: Female

DRUGS (10)
  1. ABILIFY TABS 5 MG [Suspect]
     Indication: SCHIZOPHRENIFORM DISORDER
     Route: 048
     Dates: start: 2011, end: 20120825
  2. ABILIFY TABS 5 MG [Suspect]
     Indication: AFFECTIVE DISORDER
     Route: 048
     Dates: start: 2011, end: 20120825
  3. DAFALGAN [Suspect]
  4. DEPAKOTE [Suspect]
     Indication: SCHIZOPHRENIFORM DISORDER
     Route: 048
     Dates: start: 2010, end: 20120825
  5. DEPAKOTE [Suspect]
     Indication: AFFECTIVE DISORDER
     Route: 048
     Dates: start: 2010, end: 20120825
  6. ZYLORIC [Suspect]
     Route: 048
     Dates: start: 20120709
  7. LASILIX [Suspect]
     Dates: end: 20120825
  8. ZOLPIDEM [Suspect]
     Dates: end: 20120825
  9. XANAX [Suspect]
     Dates: end: 20120825
  10. LOXEN LP [Suspect]

REACTIONS (1)
  - Drug reaction with eosinophilia and systemic symptoms [Recovering/Resolving]
